FAERS Safety Report 9280789 (Version 2)
Quarter: 2013Q2

REPORT INFORMATION
  Report Type: Spontaneous
  Country: US (occurrence: US)
  Receive Date: 20130509
  Receipt Date: 20130619
  Transmission Date: 20140414
  Serious: No
  Sender: FDA-Public Use
  Company Number: US-TEVA-402507USA

PATIENT
  Sex: Female

DRUGS (1)
  1. ACTIQ [Suspect]

REACTIONS (2)
  - Malaise [Unknown]
  - Malaise [Unknown]
